FAERS Safety Report 10392541 (Version 3)
Quarter: 2014Q3

REPORT INFORMATION
  Report Type: Report from Study
  Country: AU (occurrence: AU)
  Receive Date: 20140819
  Receipt Date: 20140826
  Transmission Date: 20150326
  Serious: Yes (Hospitalization)
  Sender: FDA-Public Use
  Company Number: PHHY2014AU084179

PATIENT
  Sex: Female

DRUGS (3)
  1. CLOZARIL [Suspect]
     Active Substance: CLOZAPINE
     Indication: SCHIZOPHRENIA
     Dosage: 350 MG,
     Route: 048
     Dates: start: 2005
  2. CLOZARIL [Suspect]
     Active Substance: CLOZAPINE
     Dosage: UNK (TITRATING DOWN BY 25 MG EVERY 3 OR 4 DAYS)
     Route: 048
     Dates: end: 20140725
  3. CLOZARIL [Suspect]
     Active Substance: CLOZAPINE
     Dosage: 400 MG
     Route: 048
     Dates: start: 20051114

REACTIONS (4)
  - Schizophrenia [Unknown]
  - Drug ineffective [Recovering/Resolving]
  - Mental disorder [Not Recovered/Not Resolved]
  - Hallucination [Unknown]
